FAERS Safety Report 7987531 (Version 2)
Quarter: 2015Q2

REPORT INFORMATION
  Report Type: Report from Study
  Country: GB (occurrence: GB)
  Receive Date: 20110613
  Receipt Date: 20150513
  Transmission Date: 20150821
  Serious: Yes (Hospitalization)
  Sender: FDA-Public Use
  Company Number: GB-ROCHE-781562

PATIENT
  Age: 68 Year
  Sex: Female
  Weight: 76 kg

DRUGS (4)
  1. BEVACIZUMAB [Suspect]
     Active Substance: BEVACIZUMAB
     Indication: ADENOCARCINOMA GASTRIC
     Dosage: DATE OF MOST RECENT ADMINISTRATION: 20 JANUARY 2011
     Route: 042
  2. EPIRUBICIN [Suspect]
     Active Substance: EPIRUBICIN
     Indication: ADENOCARCINOMA GASTRIC
     Dosage: DATE OF MOST RECENT ADMINISTRATION: 20 JANUARY 2011
     Route: 042
     Dates: start: 20110120
  3. CISPLATIN. [Suspect]
     Active Substance: CISPLATIN
     Indication: ADENOCARCINOMA GASTRIC
     Dosage: DATE OF MOST RECENT ADMINISTRATION: 20 JANUARY 2011
     Route: 042
     Dates: start: 20110120
  4. CAPECITABINE. [Suspect]
     Active Substance: CAPECITABINE
     Indication: ADENOCARCINOMA GASTRIC
     Dosage: DOSE: 1000MG MORNING AND 1500 MG EVENING, DATE OF MOST RECENT ADMINISTRATION:09 FEBRUARY 2011
     Route: 048

REACTIONS (1)
  - Renal failure [Not Recovered/Not Resolved]

NARRATIVE: CASE EVENT DATE: 20110209
